FAERS Safety Report 8075166-5 (Version None)
Quarter: 2012Q1

REPORT INFORMATION
  Report Type: 
  Country: None (occurrence: None)
  Receive Date: 20120127
  Receipt Date: 20111118
  Transmission Date: 20120608
  Serious: No
  Sender: FDA-Public Use
  Company Number: US-BAYER-2012-007095

PATIENT
  Age: 13 Year
  Sex: Male

DRUGS (1)
  1. KOGENATE FS [Suspect]
     Indication: FACTOR VIII DEFICIENCY
     Dosage: UNK

REACTIONS (1)
  - THERAPEUTIC RESPONSE DECREASED [None]
